FAERS Safety Report 6164041-9 (Version None)
Quarter: 2009Q2

REPORT INFORMATION
  Report Type: 
  Country: None (occurrence: None)
  Receive Date: 20090422
  Receipt Date: 20090416
  Transmission Date: 20091009
  Serious: Yes (Death)
  Sender: FDA-Public Use
  Company Number: US-AVENTIS-200913254US

PATIENT
  Sex: Female

DRUGS (5)
  1. LANTUS [Suspect]
     Route: 058
  2. OPTICLIK (INSULIN INJECTION PEN) [Suspect]
     Dosage: DOSE: UNK
  3. ENALAPRIL [Concomitant]
     Dosage: DOSE: 1 TAB
  4. FUROSEMIDE [Concomitant]
     Dosage: DOSE: 2 TABLETS
  5. FOSAMAX [Concomitant]
     Dosage: DOSE: UNK

REACTIONS (3)
  - CEREBROVASCULAR ACCIDENT [None]
  - FALL [None]
  - THROMBOSIS [None]
